FAERS Safety Report 5054919-1 (Version None)
Quarter: 2006Q3

REPORT INFORMATION
  Report Type: 
  Country: None (occurrence: None)
  Receive Date: 20060719
  Receipt Date: 20060317
  Transmission Date: 20061208
  Serious: No
  Sender: FDA-Public Use
  Company Number: US-AMGEN-US173119

PATIENT
  Age: 17 Year
  Sex: Male

DRUGS (2)
  1. EPOGEN [Suspect]
     Indication: ANAEMIA
  2. ENOXAPARIN SODIUM [Suspect]

REACTIONS (1)
  - CONVULSION [None]
